APPROVED DRUG PRODUCT: DIBENZYLINE
Active Ingredient: PHENOXYBENZAMINE HYDROCHLORIDE
Strength: 10MG
Dosage Form/Route: CAPSULE;ORAL
Application: N008708 | Product #001
Applicant: ADVANZ PHARMA (US) CORP
Approved: Approved Prior to Jan 1, 1982 | RLD: Yes | RS: No | Type: DISCN